FAERS Safety Report 14687959 (Version 1)
Quarter: 2018Q1

REPORT INFORMATION
  Report Type: Spontaneous
  Country: US (occurrence: US)
  Receive Date: 20180327
  Receipt Date: 20180327
  Transmission Date: 20180509
  Serious: Yes (Other)
  Sender: FDA-Public Use
  Company Number: None

PATIENT
  Age: 75 Year
  Sex: Female
  Weight: 55.79 kg

DRUGS (6)
  1. VITAMIN C [Concomitant]
     Active Substance: ASCORBIC ACID
  2. ACIPHEX [Concomitant]
     Active Substance: RABEPRAZOLE SODIUM
  3. ASPIRIN. [Concomitant]
     Active Substance: ASPIRIN
  4. CALCITONIN-SALMON 200 UNITS SP [Suspect]
     Active Substance: CALCITONIN SALMON
     Indication: OSTEOPENIA
     Dosage: 1 SPRAY EACH NOSTRIL PER DAY 1X DAY AM SPRAY IN NOSTRIL
     Route: 045
     Dates: start: 2016, end: 2017
  5. MULTI VITAMIN [Concomitant]
     Active Substance: VITAMINS
  6. LOPRESSOR [Concomitant]
     Active Substance: METOPROLOL TARTRATE

REACTIONS (2)
  - Squamous cell carcinoma of the tongue [None]
  - Nasal congestion [None]

NARRATIVE: CASE EVENT DATE: 201707
